FAERS Safety Report 25256866 (Version 1)
Quarter: 2025Q2

REPORT INFORMATION
  Report Type: Spontaneous
  Country: US (occurrence: US)
  Receive Date: 20250430
  Receipt Date: 20250430
  Transmission Date: 20250716
  Serious: No
  Sender: JOHNSON AND JOHNSON
  Company Number: US-JNJFOC-20250440329

PATIENT
  Age: 71 Year
  Sex: Female
  Weight: 79.4 kg

DRUGS (22)
  1. MACITENTAN\TADALAFIL [Suspect]
     Active Substance: MACITENTAN\TADALAFIL
     Indication: Product used for unknown indication
     Route: 048
  2. TREPROSTINIL [Suspect]
     Active Substance: TREPROSTINIL
     Indication: Pulmonary arterial hypertension
     Dates: start: 20230705
  3. TREPROSTINIL [Suspect]
     Active Substance: TREPROSTINIL
  4. AMLODIPINE BESYLATE [Concomitant]
     Active Substance: AMLODIPINE BESYLATE
  5. PLAQUENIL [Concomitant]
     Active Substance: HYDROXYCHLOROQUINE SULFATE
  6. FAMOTIDINE [Concomitant]
     Active Substance: FAMOTIDINE
  7. ZYRTEC [Concomitant]
     Active Substance: CETIRIZINE HYDROCHLORIDE
  8. PROLIA [Concomitant]
     Active Substance: DENOSUMAB
  9. VITAMIN E [Concomitant]
     Active Substance: .ALPHA.-TOCOPHEROL
  10. FOLIC ACID [Concomitant]
     Active Substance: FOLIC ACID
  11. PANTOPRAZOLE SODIUM [Concomitant]
     Active Substance: PANTOPRAZOLE SODIUM
  12. MINERALS\VITAMINS [Concomitant]
     Active Substance: MINERALS\VITAMINS
  13. CELLCEPT [Concomitant]
     Active Substance: MYCOPHENOLATE MOFETIL
  14. VITAMIN C [Concomitant]
     Active Substance: ASCORBIC ACID
  15. URSODIOL [Concomitant]
     Active Substance: URSODIOL
  16. NITROGLYCERIN [Concomitant]
     Active Substance: NITROGLYCERIN
  17. TRAMADOL HCL [Concomitant]
     Active Substance: TRAMADOL HYDROCHLORIDE
  18. OXYGEN [Concomitant]
     Active Substance: OXYGEN
  19. DULOXETINE HYDROCHLORIDE [Concomitant]
     Active Substance: DULOXETINE HYDROCHLORIDE
  20. TORSEMIDE [Concomitant]
     Active Substance: TORSEMIDE
  21. ASPIRIN [Concomitant]
     Active Substance: ASPIRIN
  22. VITAMIN D3 [Concomitant]
     Active Substance: CHOLECALCIFEROL

REACTIONS (5)
  - Nasal disorder [Unknown]
  - Seasonal allergy [Unknown]
  - Peripheral swelling [Unknown]
  - Anaemia [Unknown]
  - Arthralgia [Unknown]
